FAERS Safety Report 23782973 (Version 1)
Quarter: 2024Q2

REPORT INFORMATION
  Report Type: Spontaneous
  Country: US (occurrence: US)
  Receive Date: 20240425
  Receipt Date: 20240425
  Transmission Date: 20240716
  Serious: Yes (Other)
  Sender: FDA-Public Use
  Company Number: US-AUROBINDO-AUR-APL-2024-018919

PATIENT
  Age: 41 Year

DRUGS (3)
  1. TESTOSTERONE [Suspect]
     Active Substance: TESTOSTERONE
     Indication: Hormone replacement therapy
     Dosage: WEEKLY
     Route: 030
     Dates: start: 2016
  2. TESTOSTERONE [Suspect]
     Active Substance: TESTOSTERONE
     Dosage: 30 MILLIGRAM, EVERY WEEK
     Route: 030
     Dates: start: 2016
  3. ANASTROZOLE [Concomitant]
     Active Substance: ANASTROZOLE
     Indication: Hormone replacement therapy
     Dosage: UNK
     Route: 065
     Dates: start: 2016

REACTIONS (1)
  - Endometrial adenocarcinoma [Unknown]
